FAERS Safety Report 23871207 (Version 2)
Quarter: 2024Q2

REPORT INFORMATION
  Report Type: Spontaneous
  Country: US (occurrence: US)
  Receive Date: 20240519
  Receipt Date: 20240626
  Transmission Date: 20240716
  Serious: No
  Sender: FDA-Public Use
  Company Number: US-SA-SAC20240514000147

PATIENT
  Age: 10 Month
  Sex: Male

DRUGS (1)
  1. DUPIXENT [Suspect]
     Active Substance: DUPILUMAB
     Indication: Eczema
     Dosage: 200 MG, Q4W
     Route: 058
     Dates: start: 20240206

REACTIONS (7)
  - Influenza [Unknown]
  - Pyrexia [Recovered/Resolved]
  - Rhinorrhoea [Unknown]
  - Respiratory tract congestion [Unknown]
  - Ear infection [Unknown]
  - Viral infection [Recovered/Resolved]
  - Eczema [Unknown]

NARRATIVE: CASE EVENT DATE: 20240101
